FAERS Safety Report 5860583-1 (Version None)
Quarter: 2008Q3

REPORT INFORMATION
  Report Type: 
  Country: None (occurrence: None)
  Receive Date: 20080827
  Receipt Date: 20070917
  Transmission Date: 20090109
  Serious: No
  Sender: FDA-Public Use
  Company Number: US-ABBOTT-07P-163-0417242-00

PATIENT
  Sex: Male
  Weight: 78.542 kg

DRUGS (4)
  1. COATED PDS [Suspect]
     Indication: BLOOD CHOLESTEROL INCREASED
     Dosage: AT HS
     Route: 048
     Dates: start: 20070914
  2. SPIRONOLACTONE [Concomitant]
     Indication: HYPERTENSION
     Route: 048
  3. LISINOPRIL [Concomitant]
     Indication: HYPERTENSION
     Route: 048
  4. INHALER [Concomitant]
     Indication: ASTHMA

REACTIONS (2)
  - PRURITUS [None]
  - SKIN BURNING SENSATION [None]
